FAERS Safety Report 6314100-2 (Version None)
Quarter: 2009Q3

REPORT INFORMATION
  Report Type: 
  Country: None (occurrence: None)
  Receive Date: 20090817
  Receipt Date: 20090805
  Transmission Date: 20100115
  Serious: No
  Sender: FDA-Public Use
  Company Number: 20096811

PATIENT
  Sex: Female

DRUGS (6)
  1. LIORESAL [Suspect]
     Indication: MUSCLE SPASTICITY
     Dosage: 750 MCG, DAILY, INTRATHECAL- SEE B
  2. PREVACID [Concomitant]
  3. REGLAN [Concomitant]
  4. BENXTROPINE [Concomitant]
  5. VITAMIN D [Concomitant]
  6. MIRALAX [Concomitant]

REACTIONS (10)
  - ALOPECIA [None]
  - BLISTER [None]
  - DECUBITUS ULCER [None]
  - DELIRIUM [None]
  - IMPAIRED HEALING [None]
  - JOINT SWELLING [None]
  - OEDEMA PERIPHERAL [None]
  - SKIN ULCER [None]
  - WOUND DEHISCENCE [None]
  - WOUND SECRETION [None]
